FAERS Safety Report 8448731-0 (Version None)
Quarter: 2012Q2

REPORT INFORMATION
  Report Type: 
  Country: None (occurrence: None)
  Receive Date: 20120619
  Receipt Date: 20120614
  Transmission Date: 20120825
  Serious: Yes (Other)
  Sender: FDA-Public Use
  Company Number: IT-PFIZER INC-2012134469

PATIENT
  Age: 74 Year
  Sex: Female

DRUGS (2)
  1. ATORVASTATIN CALCIUM [Suspect]
     Dosage: 10 MG, 1X/DAY
     Route: 048
  2. PROTELOS [Concomitant]
     Indication: OSTEOPOROSIS
     Dosage: 2 G, 1X/DAY
     Dates: end: 20120401

REACTIONS (7)
  - EMPHYSEMA [None]
  - COUGH [None]
  - OROPHARYNGEAL PAIN [None]
  - RETINAL DISORDER [None]
  - LACRIMAL DISORDER [None]
  - OCULAR HYPERAEMIA [None]
  - DRY EYE [None]
